FAERS Safety Report 6751299-8 (Version None)
Quarter: 2010Q2

REPORT INFORMATION
  Report Type: 
  Country: None (occurrence: None)
  Receive Date: 20100527
  Receipt Date: 20100511
  Transmission Date: 20101027
  Serious: Yes (Other)
  Sender: FDA-Public Use
  Company Number: APP201000504

PATIENT
  Age: 38 Year
  Sex: Male

DRUGS (8)
  1. HEPARIN SODIUM INJECTION [Suspect]
     Indication: MYOCARDIAL INFARCTION
  2. RETEPLASE (RETEPLASE) [Suspect]
     Indication: DRUG USE FOR UNKNOWN INDICATION
  3. TIROFIBAN (TIROFIBAN) [Suspect]
     Indication: DRUG USE FOR UNKNOWN INDICATION
  4. ENOXAPARIN SODIUM [Suspect]
     Indication: DRUG USE FOR UNKNOWN INDICATION
  5. ASPIRIN [Concomitant]
  6. CLOPIDOGREL (CLOFIDOGREL) [Concomitant]
  7. ATENOLOL [Concomitant]
  8. SIMVASTATIN [Concomitant]

REACTIONS (16)
  - ARTERIAL THROMBOSIS [None]
  - BUNDLE BRANCH BLOCK RIGHT [None]
  - CEREBRAL HAEMATOMA [None]
  - CORONARY ARTERY OCCLUSION [None]
  - CORONARY ARTERY THROMBOSIS [None]
  - HEART RATE INCREASED [None]
  - HYPOTENSION [None]
  - LOSS OF CONSCIOUSNESS [None]
  - PULMONARY EMBOLISM [None]
  - PULMONARY THROMBOSIS [None]
  - PULSE ABSENT [None]
  - PUNCTURE SITE HAEMORRHAGE [None]
  - REFUSAL OF TREATMENT BY PATIENT [None]
  - THROMBOSIS IN DEVICE [None]
  - TRICUSPID VALVE INCOMPETENCE [None]
  - VENTRICULAR FIBRILLATION [None]
